FAERS Safety Report 17484290 (Version 1)
Quarter: 2020Q1

REPORT INFORMATION
  Report Type: Spontaneous
  Country: US (occurrence: US)
  Receive Date: 20200219
  Receipt Date: 20200219
  Transmission Date: 20200409
  Serious: Yes (Other)
  Sender: FDA-Public Use
  Company Number: None

PATIENT
  Age: 79 Year
  Sex: Female
  Weight: 61.69 kg

DRUGS (2)
  1. PHENYTOIN SODIUM EXTENDED RELEASE CAPSULES [Suspect]
     Active Substance: PHENYTOIN SODIUM, EXTENDED
     Indication: SEIZURE
     Dosage: ?          QUANTITY:400 MG MILLIGRAM(S);?
     Route: 048
     Dates: start: 20200121, end: 20200208
  2. CENTRUM SILVER [Concomitant]
     Active Substance: MINERALS\VITAMINS

REACTIONS (7)
  - Fatigue [None]
  - Performance fear [None]
  - Product formulation issue [None]
  - Dissociation [None]
  - Disturbance in attention [None]
  - Product substitution issue [None]
  - Feeling abnormal [None]

NARRATIVE: CASE EVENT DATE: 20200121
